FAERS Safety Report 9911863 (Version 2)
Quarter: 2014Q1

REPORT INFORMATION
  Report Type: Spontaneous
  Country: US (occurrence: US)
  Receive Date: 20140219
  Receipt Date: 20140219
  Transmission Date: 20141002
  Serious: No
  Sender: FDA-Public Use
  Company Number: US-MYLANLABS-2013S1010686

PATIENT
  Age: 52 Year
  Sex: Female
  Weight: 68.03 kg

DRUGS (1)
  1. EPIPEN [Suspect]
     Indication: ANAPHYLACTIC REACTION
     Dosage: 1:1000, 0.3 ML, PRN
     Route: 030
     Dates: end: 20130508

REACTIONS (3)
  - Accidental exposure to product [Recovering/Resolving]
  - Pain in extremity [Recovering/Resolving]
  - Injection site haemorrhage [Recovering/Resolving]
